FAERS Safety Report 5915145-4 (Version None)
Quarter: 2008Q4

REPORT INFORMATION
  Report Type: 
  Country: None (occurrence: None)
  Receive Date: 20081010
  Receipt Date: 20080930
  Transmission Date: 20090506
  Serious: Yes (Death, Hospitalization, Disabling, Other)
  Sender: FDA-Public Use
  Company Number: US-ROCHE-553245

PATIENT
  Sex: Female
  Weight: 54.4 kg

DRUGS (2)
  1. BONIVA [Suspect]
     Indication: DRUG USE FOR UNKNOWN INDICATION
     Route: 048
     Dates: end: 20071001
  2. ARICEPT [Concomitant]

REACTIONS (17)
  - ABDOMINAL DISCOMFORT [None]
  - ANOREXIA [None]
  - ARTERIOSCLEROSIS [None]
  - BACTERIAL INFECTION [None]
  - CARDIO-RESPIRATORY ARREST [None]
  - CONSTIPATION [None]
  - CONTUSION [None]
  - DIARRHOEA [None]
  - DIZZINESS [None]
  - FALL [None]
  - NAUSEA [None]
  - PAIN [None]
  - PNEUMONIA [None]
  - RESPIRATORY ARREST [None]
  - STAPHYLOCOCCAL INFECTION [None]
  - URINARY TRACT INFECTION [None]
  - WEIGHT DECREASED [None]
